FAERS Safety Report 24587932 (Version 1)
Quarter: 2024Q4

REPORT INFORMATION
  Report Type: Spontaneous
  Country: CN (occurrence: CN)
  Receive Date: 20241107
  Receipt Date: 20241107
  Transmission Date: 20250114
  Serious: Yes (Other)
  Sender: ROCHE
  Company Number: CN-ROCHE-10000120535

PATIENT
  Age: 52 Year
  Sex: Female
  Weight: 58 kg

DRUGS (2)
  1. TRASTUZUMAB [Suspect]
     Active Substance: TRASTUZUMAB
     Indication: Neoplasm malignant
     Route: 042
     Dates: start: 20241003, end: 20241003
  2. PERTUZUMAB [Suspect]
     Active Substance: PERTUZUMAB
     Indication: Neoplasm malignant
     Route: 042
     Dates: start: 20241003, end: 20241003

REACTIONS (1)
  - Myelosuppression [Recovering/Resolving]

NARRATIVE: CASE EVENT DATE: 20241022
